FAERS Safety Report 9156367 (Version 1)
Quarter: 2013Q1

REPORT INFORMATION
  Report Type: Spontaneous
  Country: IT (occurrence: None)
  Receive Date: 20130208
  Receipt Date: 20130208
  Transmission Date: 20140127
  Serious: Yes (Other)
  Sender: FDA-Public Use
  Company Number: AUR-APL-2013-01116

PATIENT
  Age: 90 Year
  Sex: Female

DRUGS (4)
  1. LORAZEPAM [Suspect]
     Route: 048
     Dates: start: 20111208, end: 20121207
  2. MIRTAZAPINE (MIRTAZAPINE) [Suspect]
     Route: 048
     Dates: start: 20111208, end: 20121207
  3. STILNOX [Suspect]
     Route: 048
     Dates: start: 20121205, end: 20121206
  4. TRITTICO [Suspect]
     Route: 048
     Dates: start: 20111208, end: 20121207

REACTIONS (2)
  - Confusional state [None]
  - Psychomotor hyperactivity [None]
